FAERS Safety Report 5844909-0 (Version None)
Quarter: 2008Q3

REPORT INFORMATION
  Report Type: 
  Country: None (occurrence: None)
  Receive Date: 20080812
  Receipt Date: 20080729
  Transmission Date: 20090109
  Serious: Yes (Death, Hospitalization)
  Sender: FDA-Public Use
  Company Number: 100#03#2006-02579

PATIENT
  Age: 48 Year
  Sex: Male

DRUGS (5)
  1. SERTRALINE [Suspect]
     Indication: DEPRESSION
     Dosage: 100 MG, ORAL
     Route: 048
     Dates: start: 20060314, end: 20060728
  2. QUETIAPINE FUMARATE [Suspect]
     Indication: SCHIZOPHRENIA
     Dosage: 100 MG, ORAL
     Route: 048
     Dates: start: 20050101
  3. SERTRALINE [Suspect]
     Indication: BLOOD CHOLESTEROL INCREASED
     Dosage: 40 MG, ORAL
     Route: 048
     Dates: start: 20050101
  4. UNSPECIFIED DRUG (UNSPECIFIED DRUG) [Suspect]
     Indication: DRUG USE FOR UNKNOWN INDICATION
  5. ARIPIPRAZOLE [Concomitant]

REACTIONS (5)
  - HEPATIC FAILURE [None]
  - HEPATIC STEATOSIS [None]
  - OEDEMA [None]
  - OVERDOSE [None]
  - PULMONARY CONGESTION [None]
